FAERS Safety Report 12392897 (Version 1)
Quarter: 2016Q2

REPORT INFORMATION
  Report Type: Spontaneous
  Country: US (occurrence: None)
  Receive Date: 20160520
  Receipt Date: 20160520
  Transmission Date: 20160815
  Serious: No
  Sender: FDA-Public Use
  Company Number: None

PATIENT
  Age: 50 Year
  Sex: Female

DRUGS (18)
  1. IBRANCE [Suspect]
     Active Substance: PALBOCICLIB
     Indication: NEOPLASM MALIGNANT
     Dosage: 125MG QD 21 DAYS ON, 7 OFF ORAL
     Route: 048
     Dates: start: 20160509
  2. VITAMIN D3 [Concomitant]
     Active Substance: CHOLECALCIFEROL
  3. COREG CR [Concomitant]
     Active Substance: CARVEDILOL PHOSPHATE
  4. CALCIUM GLUCONATE. [Concomitant]
     Active Substance: CALCIUM GLUCONATE
  5. FASLODEX [Concomitant]
     Active Substance: FULVESTRANT
  6. MOBIC [Concomitant]
     Active Substance: MELOXICAM
  7. CELEBREX [Concomitant]
     Active Substance: CELECOXIB
  8. DOCUSATE SODIUM. [Concomitant]
     Active Substance: DOCUSATE SODIUM
  9. VOLTAREN [Concomitant]
     Active Substance: DICLOFENAC SODIUM
  10. EFFEXOR XR [Concomitant]
     Active Substance: VENLAFAXINE HYDROCHLORIDE
  11. OMEGA3 [Concomitant]
  12. MAGNESIUM [Concomitant]
     Active Substance: MAGNESIUM
  13. OXYCODONE [Concomitant]
     Active Substance: OXYCODONE
  14. PRILOSEC [Concomitant]
     Active Substance: OMEPRAZOLE MAGNESIUM
  15. FLONASE [Concomitant]
     Active Substance: FLUTICASONE PROPIONATE
  16. GABAPENTIN. [Concomitant]
     Active Substance: GABAPENTIN
  17. TAMOXIFEN [Concomitant]
     Active Substance: TAMOXIFEN
  18. LISINOPRIL. [Concomitant]
     Active Substance: LISINOPRIL

REACTIONS (5)
  - Headache [None]
  - Hot flush [None]
  - Fatigue [None]
  - Hyperhidrosis [None]
  - Pain [None]

NARRATIVE: CASE EVENT DATE: 20160509
